FAERS Safety Report 10733734 (Version 2)
Quarter: 2015Q1

REPORT INFORMATION
  Report Type: Spontaneous
  Country: RU (occurrence: RU)
  Receive Date: 20150123
  Receipt Date: 20150205
  Transmission Date: 20150721
  Serious: Yes (Hospitalization)
  Sender: FDA-Public Use
  Company Number: RU-ABBVIE-15P-251-1335159-00

PATIENT
  Sex: Male
  Weight: 57 kg

DRUGS (2)
  1. KIVEXA [Suspect]
     Active Substance: ABACAVIR SULFATE\LAMIVUDINE
     Indication: PRODUCT USED FOR UNKNOWN INDICATION
     Dosage: AT NIGHT
     Route: 065
     Dates: start: 201401
  2. KALETRA [Suspect]
     Active Substance: LOPINAVIR\RITONAVIR
     Indication: PRODUCT USED FOR UNKNOWN INDICATION
     Dosage: IN THE MORNING AND EVENING
     Route: 065
     Dates: start: 201401

REACTIONS (11)
  - Sleep disorder [Not Recovered/Not Resolved]
  - Fatigue [Unknown]
  - Rhinorrhoea [Unknown]
  - Lipodystrophy acquired [Not Recovered/Not Resolved]
  - Bronchopneumonia [Not Recovered/Not Resolved]
  - Apathy [Unknown]
  - Duodenitis [Not Recovered/Not Resolved]
  - Appetite disorder [Not Recovered/Not Resolved]
  - Insomnia [Unknown]
  - Chronic gastritis [Not Recovered/Not Resolved]
  - Decreased appetite [Unknown]

NARRATIVE: CASE EVENT DATE: 2014
